FAERS Safety Report 11061386 (Version 1)
Quarter: 2015Q2

REPORT INFORMATION
  Report Type: Spontaneous
  Country: US (occurrence: None)
  Receive Date: 20150423
  Receipt Date: 20150423
  Transmission Date: 20150821
  Serious: Yes (Disabling, Other)
  Sender: FDA-Public Use
  Company Number: None

PATIENT
  Age: 30 Year
  Sex: Female
  Weight: 76.66 kg

DRUGS (2)
  1. RISPERIDONE. [Suspect]
     Active Substance: RISPERIDONE
     Indication: POST-TRAUMATIC STRESS DISORDER
     Dosage: TAKE 2 PILLS AT BEDTIME DAILY
     Route: 048
     Dates: start: 20150105, end: 20150421
  2. RISPERIDONE. [Suspect]
     Active Substance: RISPERIDONE
     Indication: SLEEP DISORDER
     Dosage: TAKE 2 PILLS AT BEDTIME DAILY
     Route: 048
     Dates: start: 20150105, end: 20150421

REACTIONS (2)
  - Weight increased [None]
  - Lactation disorder [None]
